FAERS Safety Report 10987968 (Version 2)
Quarter: 2015Q2

REPORT INFORMATION
  Report Type: Spontaneous
  Country: US (occurrence: US)
  Receive Date: 20150404
  Receipt Date: 20150525
  Transmission Date: 20150821
  Serious: No
  Sender: FDA-Public Use
  Company Number: US-JNJFOC-20110203602

PATIENT
  Sex: Female

DRUGS (3)
  1. CORTICOSTEROID [Concomitant]
     Active Substance: CORTICOSTEROID NOS
     Indication: COLITIS ULCERATIVE
  2. REMICADE [Suspect]
     Active Substance: INFLIXIMAB
     Indication: COLITIS ULCERATIVE
     Route: 042
  3. 5ASA [Concomitant]
     Indication: COLITIS ULCERATIVE

REACTIONS (3)
  - Urticaria [Unknown]
  - Rash [Unknown]
  - Infusion related reaction [Unknown]
